FAERS Safety Report 18960491 (Version 4)
Quarter: 2021Q2

REPORT INFORMATION
  Report Type: Report from Study
  Country: KR (occurrence: KR)
  Receive Date: 20210303
  Receipt Date: 20210524
  Transmission Date: 20210717
  Serious: Yes (Hospitalization)
  Sender: FDA-Public Use
  Company Number: KR-ROCHE-2778848

PATIENT
  Age: 52 Year
  Sex: Female
  Weight: 55.3 kg

DRUGS (14)
  1. COBIMETINIB. [Suspect]
     Active Substance: COBIMETINIB
     Indication: LUNG NEOPLASM MALIGNANT
     Dosage: THE LAST DOSE OF THE INVESTIGATIONAL PRODUCT COBIMETINIB PRIOR TO SAE ONSET WAS ON 28/DEC/2020.
     Route: 048
     Dates: start: 20200723, end: 20200805
  2. COBIMETINIB. [Suspect]
     Active Substance: COBIMETINIB
     Route: 048
     Dates: start: 20200827
  3. DICODE [Concomitant]
     Indication: COUGH
     Route: 048
     Dates: start: 20200513
  4. ATIVAN [Concomitant]
     Active Substance: LORAZEPAM
     Indication: INSOMNIA
     Route: 048
     Dates: start: 20200709
  5. HM95573 (RAF KINASE INHIBITOR) [Suspect]
     Active Substance: INVESTIGATIONAL PRODUCT
     Dosage: 200 MG,2 IN 1 D
     Route: 048
     Dates: start: 20200827
  6. AMLODIPINE [Concomitant]
     Active Substance: AMLODIPINE BESYLATE
     Indication: HYPERTENSION
     Route: 048
  7. TRAJENTA [Concomitant]
     Active Substance: LINAGLIPTIN
     Indication: DIABETES MELLITUS
     Dates: start: 20200722
  8. DIAMICRON MR [Concomitant]
     Active Substance: GLICLAZIDE
     Route: 048
     Dates: start: 20200806
  9. ACTOS [Concomitant]
     Active Substance: PIOGLITAZONE HYDROCHLORIDE
     Indication: DIABETES MELLITUS
     Route: 048
     Dates: start: 20200806
  10. HYABAK (UNK INGREDIENTS) [Concomitant]
     Route: 061
     Dates: start: 20201110
  11. DIAMICRON MR [Concomitant]
     Active Substance: GLICLAZIDE
     Indication: DIABETES MELLITUS
     Route: 048
     Dates: start: 20200805
  12. HM95573 (RAF KINASE INHIBITOR) [Suspect]
     Active Substance: INVESTIGATIONAL PRODUCT
     Indication: LUNG NEOPLASM MALIGNANT
     Dosage: 200 MG,2 IN 1 D. THE LAST DOSE OF THE INVESTIGATIONAL PRODUCTS HM95573 PRIOR TO SAE ONSET WAS ON 06/
     Route: 048
     Dates: start: 20200723, end: 20200805
  13. CODAEWON FORTE [Concomitant]
     Indication: COUGH
     Route: 048
     Dates: start: 20170717
  14. MUTERAN [Concomitant]
     Active Substance: ACETYLCYSTEINE
     Indication: COUGH
     Dosage: AS REQUIRED
     Route: 048
     Dates: start: 20200723

REACTIONS (1)
  - Paronychia [Not Recovered/Not Resolved]

NARRATIVE: CASE EVENT DATE: 20210107
